FAERS Safety Report 9496924 (Version 2)
Quarter: 2013Q4

REPORT INFORMATION
  Report Type: Other
  Country: GB (occurrence: GB)
  Receive Date: 20130904
  Receipt Date: 20131119
  Transmission Date: 20140711
  Serious: Yes (Death, Hospitalization)
  Sender: FDA-Public Use
  Company Number: GB-TARO PHARMACEUTICALS U.S.A., INC-2013SUN04552

PATIENT
  Age: 66 Year
  Sex: Male
  Weight: 180 kg

DRUGS (8)
  1. WARFARIN [Suspect]
     Indication: ATRIAL FIBRILLATION
     Route: 048
  2. AMITRIPTYLINE [Concomitant]
  3. BISOPROLOL [Concomitant]
  4. BUMETANIDE [Concomitant]
  5. LEVEMIR [Concomitant]
  6. LIRAGLUTIDE [Concomitant]
  7. SIMVASTATIN [Concomitant]
  8. SOLIFENACIN [Concomitant]

REACTIONS (6)
  - Cerebral haemorrhage [Fatal]
  - Speech disorder [Unknown]
  - Hemiparesis [Unknown]
  - Headache [Unknown]
  - Vomiting [Unknown]
  - Hypertension [Unknown]
